FAERS Safety Report 10558718 (Version 1)
Quarter: 2014Q4

REPORT INFORMATION
  Report Type: Spontaneous
  Country: FR (occurrence: FR)
  Receive Date: 20141031
  Receipt Date: 20141031
  Transmission Date: 20150529
  Serious: Yes (Other)
  Sender: FDA-Public Use
  Company Number: FR-ABBVIE-14P-056-1299065-00

PATIENT
  Age: 60 Year
  Sex: Male

DRUGS (2)
  1. KALETRA [Suspect]
     Active Substance: LOPINAVIR\RITONAVIR
     Indication: HIV INFECTION
     Route: 065
  2. EMTRICITABINE W/TENOFOVIR DISOPROXIL FUMARATE [Suspect]
     Active Substance: EMTRICITABINE\TENOFOVIR DISOPROXIL
     Indication: HIV INFECTION
     Route: 048
     Dates: start: 201111, end: 201409

REACTIONS (3)
  - Drug ineffective [Unknown]
  - Treatment noncompliance [Unknown]
  - Virologic failure [Unknown]
